FAERS Safety Report 6250677-3 (Version None)
Quarter: 2009Q2

REPORT INFORMATION
  Report Type: 
  Country: None (occurrence: None)
  Receive Date: 20090630
  Receipt Date: 20090617
  Transmission Date: 20091009
  Serious: Yes (Other)
  Sender: FDA-Public Use
  Company Number: US-JNJFOC-20090606007

PATIENT
  Age: 17 Year
  Sex: Female

DRUGS (3)
  1. INFLIXIMAB [Suspect]
     Indication: CROHN'S DISEASE
     Dosage: DOSE, DATES AND FREQUENCY UNSPECIFIED
     Route: 042
  2. MESALAMINE [Concomitant]
     Dosage: STARTED AT 13 YEARS OLD; DIAGNOSED WITH CROHN'S DISEASE
  3. MERCAPTOPURINE [Concomitant]
     Dosage: STARTED AT 13 YEARS OLD; DIAGNOSED WITH CROHN'S DISEASE

REACTIONS (2)
  - LEUKOPENIA [None]
  - LUPUS-LIKE SYNDROME [None]
